FAERS Safety Report 25472454 (Version 5)
Quarter: 2025Q3

REPORT INFORMATION
  Report Type: Report from Study
  Country: US (occurrence: US)
  Receive Date: 20250624
  Receipt Date: 20250820
  Transmission Date: 20251020
  Serious: No
  Sender: SUNOVION
  Company Number: US-SMPA-2025SPA007034AA

PATIENT
  Age: 78 Year
  Sex: Male

DRUGS (9)
  1. ORGOVYX [Suspect]
     Active Substance: RELUGOLIX
     Indication: Prostate cancer
     Dosage: 360 MG, SINGLE
     Route: 048
     Dates: start: 20250529, end: 20250529
  2. ORGOVYX [Suspect]
     Active Substance: RELUGOLIX
     Dosage: 120 MG, QD
     Route: 048
     Dates: start: 20250530
  3. ELIQUIS [Concomitant]
     Active Substance: APIXABAN
  4. ATORVASTATIN [Concomitant]
     Active Substance: ATORVASTATIN
  5. CYCLOSPORINE [Concomitant]
     Active Substance: CYCLOSPORINE
  6. TADALAFIL [Concomitant]
     Active Substance: TADALAFIL
  7. CIALIS [Concomitant]
     Active Substance: TADALAFIL
  8. TOBRAMYCIN [Concomitant]
     Active Substance: TOBRAMYCIN
  9. VANCOMYCIN [Concomitant]
     Active Substance: VANCOMYCIN

REACTIONS (10)
  - Heart rate decreased [Unknown]
  - Pollakiuria [Recovered/Resolved]
  - Limb discomfort [Unknown]
  - Night sweats [Unknown]
  - Constipation [Recovered/Resolved]
  - Musculoskeletal stiffness [Recovered/Resolved]
  - Hot flush [Unknown]
  - Fatigue [Unknown]
  - Diarrhoea [Unknown]
  - Pain in extremity [Unknown]
